FAERS Safety Report 17797929 (Version 5)
Quarter: 2021Q4

REPORT INFORMATION
  Report Type: Spontaneous
  Country: US (occurrence: US)
  Receive Date: 20200518
  Receipt Date: 20211006
  Transmission Date: 20220303
  Serious: Yes (Other)
  Sender: FDA-Public Use
  Company Number: US-PFIZER INC-2020194785

PATIENT
  Age: 58 Year
  Sex: Female

DRUGS (1)
  1. XELJANZ XR [Suspect]
     Active Substance: TOFACITINIB CITRATE
     Indication: Rheumatoid arthritis
     Dosage: 11 MG, 1X/DAY (DEPENDING ON THE SYMPTOM MAY TAKE MEDICATION TWICE DAILY)
     Route: 048
     Dates: start: 2019

REACTIONS (5)
  - Sinusitis [Unknown]
  - Off label use [Unknown]
  - Product dose omission in error [Unknown]
  - Productive cough [Unknown]
  - Seasonal allergy [Unknown]

NARRATIVE: CASE EVENT DATE: 20190101
